FAERS Safety Report 7035382-8 (Version None)
Quarter: 2010Q4

REPORT INFORMATION
  Report Type: 
  Country: None (occurrence: None)
  Receive Date: 20101008
  Receipt Date: 20100921
  Transmission Date: 20110411
  Serious: Yes (Other)
  Sender: FDA-Public Use
  Company Number: PHHY2010BR65919

PATIENT
  Age: 35 Year
  Sex: Male
  Weight: 110 kg

DRUGS (3)
  1. EXFORGE [Suspect]
     Indication: HYPERTENSION
     Dosage: 160/5 MG, ONCE DAILY
     Dates: start: 20090601
  2. DIOVAN TRIPLE [Suspect]
     Indication: HYPERTENSION
     Dosage: 160/5/12.5 ONCE DAILY
     Dates: start: 20090701
  3. ENALAPRIL MALEATE [Concomitant]
     Dosage: 10 MG, TWICE DAILY

REACTIONS (10)
  - ALBUMINURIA [None]
  - ANGIOPATHY [None]
  - BLOOD CHOLESTEROL INCREASED [None]
  - BLOOD TRIGLYCERIDES INCREASED [None]
  - BLOOD UREA INCREASED [None]
  - LEFT VENTRICULAR HYPERTROPHY [None]
  - LOW DENSITY LIPOPROTEIN INCREASED [None]
  - STRESS AT WORK [None]
  - SUBARACHNOID HAEMORRHAGE [None]
  - WEIGHT DECREASED [None]
